FAERS Safety Report 13141603 (Version 1)
Quarter: 2017Q1

REPORT INFORMATION
  Report Type: Spontaneous
  Country: GB (occurrence: GB)
  Receive Date: 20170123
  Receipt Date: 20170123
  Transmission Date: 20170428
  Serious: Yes (Other)
  Sender: FDA-Public Use
  Company Number: GB-SA-2017SA008053

PATIENT
  Age: 72 Year
  Sex: Female
  Weight: 50 kg

DRUGS (9)
  1. INDAPAMIDE. [Suspect]
     Active Substance: INDAPAMIDE
     Indication: HYPERTENSION
     Dosage: FORM- MODIFIED RELEASE (NOT SPECIFIED)
     Route: 065
     Dates: start: 20170104
  2. CETRABEN [Concomitant]
     Active Substance: PARAFFIN
     Dosage: APPLY AS DIRECTED AND USE AS A SOAP SUBSTITUTE ...?EMOLLIENT CREAM
     Dates: start: 20160531
  3. FOLIC ACID. [Concomitant]
     Active Substance: FOLIC ACID
     Dosage: ONCE DAILY, EXCEPT ON DAY OF METHOTREXATE.
     Dates: start: 20160531
  4. LANSOPRAZOLE. [Concomitant]
     Active Substance: LANSOPRAZOLE
     Dates: start: 20160531
  5. LOTRIDERM [Concomitant]
     Active Substance: BETAMETHASONE DIPROPIONATE\CLOTRIMAZOLE
     Dates: start: 20160920
  6. METHOTREXATE. [Concomitant]
     Active Substance: METHOTREXATE
     Dates: start: 20160531
  7. PIROXICAM. [Concomitant]
     Active Substance: PIROXICAM
     Dosage: USE SPARINGLY.
     Dates: start: 20160531
  8. RAMIPRIL. [Concomitant]
     Active Substance: RAMIPRIL
     Dates: start: 20161116, end: 20161214
  9. AMOXICILLIN. [Concomitant]
     Active Substance: AMOXICILLIN
     Dates: start: 20161128, end: 20161203

REACTIONS (3)
  - Malaise [Recovered/Resolved]
  - Hyponatraemia [Recovered/Resolved]
  - Fatigue [Recovered/Resolved]

NARRATIVE: CASE EVENT DATE: 201701
